FAERS Safety Report 8552379-7 (Version None)
Quarter: 2012Q3

REPORT INFORMATION
  Report Type: 
  Country: None (occurrence: None)
  Receive Date: 20120718
  Receipt Date: 20120706
  Transmission Date: 20120928
  Serious: Yes (Hospitalization, Other)
  Sender: FDA-Public Use
  Company Number: DSU-2012-05500

PATIENT
  Age: 67 Year
  Sex: Female

DRUGS (3)
  1. OLMESARTAN MEDOXOMIL AND HYDROCHLOROTHIZIDE [Suspect]
     Indication: BLOOD PRESSURE
     Dosage: 20/12.5 MG (QD), PER ORAL
     Route: 048
     Dates: start: 20110901
  2. ASPIRIN [Concomitant]
  3. GLYBURIDE [Concomitant]

REACTIONS (5)
  - CYSTITIS [None]
  - HYPERTENSION [None]
  - PAIN [None]
  - CONDITION AGGRAVATED [None]
  - URINARY TRACT INFECTION [None]
